FAERS Safety Report 8569415 (Version 2)
Quarter: 2013Q2

REPORT INFORMATION
  Report Type: Spontaneous
  Country: CA (occurrence: CA)
  Receive Date: 20120518
  Receipt Date: 20130426
  Transmission Date: 20140414
  Serious: Yes (Other)
  Sender: FDA-Public Use
  Company Number: CA-JNJFOC-20120509841

PATIENT
  Age: 41 Year
  Sex: Female
  Weight: 52 kg

DRUGS (7)
  1. REMICADE [Suspect]
     Indication: CROHN^S DISEASE
     Dosage: RECEIVED 35 INFUSIONS TOTALLY
     Route: 042
     Dates: end: 201109
  2. REMICADE [Suspect]
     Indication: CROHN^S DISEASE
     Dosage: 5MG/KG
     Route: 042
     Dates: start: 200601
  3. REMICADE [Suspect]
     Indication: CROHN^S DISEASE
     Dosage: DOSE ALSO REPORTED AS 500 MG
     Route: 042
     Dates: end: 201112
  4. REMICADE [Suspect]
     Indication: CROHN^S DISEASE
     Route: 042
     Dates: start: 201001
  5. REMICADE [Suspect]
     Indication: CROHN^S DISEASE
     Route: 042
     Dates: start: 201005
  6. REMICADE [Suspect]
     Indication: CROHN^S DISEASE
     Route: 042
     Dates: start: 200405
  7. METHOTREXATE [Concomitant]
     Route: 058
     Dates: start: 201301

REACTIONS (1)
  - Breast cancer [Unknown]
